FAERS Safety Report 4666975-0 (Version None)
Quarter: 2005Q2

REPORT INFORMATION
  Report Type: 
  Country: None (occurrence: None)
  Receive Date: 20050517
  Receipt Date: 20050309
  Transmission Date: 20051028
  Serious: Yes (Hospitalization)
  Sender: FDA-Public Use
  Company Number: 53999/31

PATIENT
  Age: 43 Year
  Sex: Male

DRUGS (18)
  1. FLUCONAZOLE [Suspect]
     Indication: BLEEDING VARICOSE VEIN
     Dosage: 200 MG
  2. FLUCONAZOLE [Suspect]
     Indication: PYREXIA
     Dosage: 200 MG
  3. METHADONE HCL [Suspect]
     Indication: HIV INFECTION
     Dosage: 120MG/110MG
  4. NELFINAVIR [Suspect]
     Indication: HIV INFECTION
     Dosage: 250 MG
  5. LAMIVUDINE [Suspect]
     Indication: HIV INFECTION
     Dosage: 300 MG
  6. STAVUDINE [Suspect]
     Indication: HIV INFECTION
     Dosage: 80 MG
  7. PROPRANOLOL [Concomitant]
  8. ENALAPRIL MALEATE [Concomitant]
  9. FUROSEMIDE [Concomitant]
  10. HYDROCHLOROTHIAZIDE AND POTASSIUM-SPARING AGENTS [Concomitant]
  11. OMEPRAZOLE [Concomitant]
  12. ALLOPURINOL [Concomitant]
  13. VITAMIN K [Concomitant]
  14. LACTULOSE [Concomitant]
  15. CALCIUM LEVOFOLINATE [Concomitant]
  16. IRON TRIVALENT, ORAL PREPARATIONS [Concomitant]
  17. PAROMOMYCIN [Concomitant]
  18. CEFTRIAXONE [Concomitant]

REACTIONS (3)
  - DRUG INTERACTION [None]
  - ELECTROCARDIOGRAM QT PROLONGED [None]
  - TORSADE DE POINTES [None]
